FAERS Safety Report 6248540-7 (Version None)
Quarter: 2009Q2

REPORT INFORMATION
  Report Type: 
  Country: None (occurrence: None)
  Receive Date: 20090629
  Receipt Date: 20090619
  Transmission Date: 20091009
  Serious: Yes (Other)
  Sender: FDA-Public Use
  Company Number: JP-BRISTOL-MYERS SQUIBB COMPANY-14681357

PATIENT
  Age: 54 Year
  Sex: Male

DRUGS (2)
  1. ABILIFY [Suspect]
     Indication: APATHY
     Dosage: ABILIFY TABLET, 3MG: REGIMEN 2-6MG/D ORAL; REGIMEN 3-12MG/D ORAL
     Route: 048
  2. LULLAN [Concomitant]
     Dosage: TABLET; TAPERED TO 8MG/D AND 4MG/D

REACTIONS (1)
  - DELUSION [None]
